FAERS Safety Report 11430784 (Version 1)
Quarter: 2015Q3

REPORT INFORMATION
  Report Type: Spontaneous
  Country: US (occurrence: US)
  Receive Date: 20150828
  Receipt Date: 20150828
  Transmission Date: 20151125
  Serious: No
  Sender: FDA-Public Use
  Company Number: US-ROCHE-1250048

PATIENT
  Sex: Female

DRUGS (5)
  1. PROCRIT [Concomitant]
     Active Substance: ERYTHROPOIETIN
  2. PEGASYS [Suspect]
     Active Substance: PEGINTERFERON ALFA-2A
     Indication: CHRONIC HEPATITIS C
     Dosage: PROCLICK
     Route: 065
     Dates: start: 20110830
  3. PEGASYS [Suspect]
     Active Substance: PEGINTERFERON ALFA-2A
     Route: 065
     Dates: start: 20130717
  4. COPEGUS [Suspect]
     Active Substance: RIBAVIRIN
     Dosage: DAILY IN DIVIDED DOSES, 600/600
     Route: 065
     Dates: start: 20130717
  5. COPEGUS [Suspect]
     Active Substance: RIBAVIRIN
     Indication: CHRONIC HEPATITIS C
     Dosage: DAILY
     Route: 065
     Dates: start: 20110830

REACTIONS (6)
  - Nausea [Unknown]
  - Feeling of body temperature change [Unknown]
  - Micturition urgency [Unknown]
  - Hepatitis C [Unknown]
  - Urinary tract infection [Unknown]
  - Hyperhidrosis [Unknown]
